FAERS Safety Report 12129632 (Version 2)
Quarter: 2017Q1

REPORT INFORMATION
  Report Type: Other
  Country: US (occurrence: US)
  Receive Date: 20160229
  Receipt Date: 20170210
  Transmission Date: 20170428
  Serious: No
  Sender: FDA-Public Use
  Company Number: US-ACORDA-ACO_120536_2016

PATIENT
  Sex: Female

DRUGS (2)
  1. AMPYRA [Suspect]
     Active Substance: DALFAMPRIDINE
     Indication: MULTIPLE SCLEROSIS
     Dosage: 10 MG, BID
     Route: 048
  2. COPAXONE [Concomitant]
     Active Substance: GLATIRAMER ACETATE
     Indication: PRODUCT USED FOR UNKNOWN INDICATION
     Route: 065

REACTIONS (8)
  - Cystitis [Unknown]
  - Mental status changes [Unknown]
  - Insomnia [Recovered/Resolved]
  - Nervousness [Recovered/Resolved]
  - Fatigue [Recovering/Resolving]
  - Decreased appetite [Unknown]
  - Anxiety [Recovered/Resolved]
  - Depression [Recovered/Resolved]
